FAERS Safety Report 14995531 (Version 2)
Quarter: 2018Q4

REPORT INFORMATION
  Report Type: Spontaneous
  Country: CA (occurrence: CA)
  Receive Date: 20180611
  Receipt Date: 20181026
  Transmission Date: 20190204
  Serious: Yes (Life-Threatening, Hospitalization, Other)
  Sender: FDA-Public Use
  Company Number: CA-ALLERGAN-1828887US

PATIENT
  Age: 64 Year
  Sex: Male
  Weight: 70 kg

DRUGS (14)
  1. PANTOPRAZOLE MAGNESIUM [Suspect]
     Active Substance: PANTOPRAZOLE MAGNESIUM
     Indication: PRODUCT USED FOR UNKNOWN INDICATION
     Dosage: UNK, UNKNOWN
     Route: 065
  2. PROPRANOLOL HYDROCHLORIDE. [Suspect]
     Active Substance: PROPRANOLOL HYDROCHLORIDE
     Indication: PRODUCT USED FOR UNKNOWN INDICATION
     Dosage: UNK, UNKNOWN
     Route: 048
  3. CITALOPRAM HYDROBROMIDE - BP [Suspect]
     Active Substance: CITALOPRAM HYDROBROMIDE
     Indication: PRODUCT USED FOR UNKNOWN INDICATION
     Dosage: UNK, UNKNOWN
     Route: 048
  4. FESOTERODINE FUMARATE. [Suspect]
     Active Substance: FESOTERODINE FUMARATE
     Indication: PRODUCT USED FOR UNKNOWN INDICATION
     Dosage: UNK, UNKNOWN
     Route: 048
  5. ROSUVASTATIN. [Suspect]
     Active Substance: ROSUVASTATIN
     Indication: PRODUCT USED FOR UNKNOWN INDICATION
     Dosage: UNK, UNKNOWN
     Route: 048
  6. LEVOTHYROXINE. [Suspect]
     Active Substance: LEVOTHYROXINE
     Indication: PRODUCT USED FOR UNKNOWN INDICATION
     Dosage: UNK, UNKNOWN
     Route: 048
  7. BUPROPION. [Suspect]
     Active Substance: BUPROPION
     Indication: PRODUCT USED FOR UNKNOWN INDICATION
     Dosage: UNK, UNKNOWN
     Route: 048
  8. LOPERAMIDE [Suspect]
     Active Substance: LOPERAMIDE
     Indication: PRODUCT USED FOR UNKNOWN INDICATION
     Dosage: UNK, UNKNOWN
     Route: 048
  9. OFEV [Suspect]
     Active Substance: NINTEDANIB
     Dosage: 150 MG, QD
     Route: 048
  10. DOMPERIDONE [Concomitant]
     Active Substance: DOMPERIDONE
     Indication: PRODUCT USED FOR UNKNOWN INDICATION
     Dosage: UNK, UNKNOWN
     Route: 065
  11. TECTA [Suspect]
     Active Substance: PANTOPRAZOLE MAGNESIUM
     Indication: PRODUCT USED FOR UNKNOWN INDICATION
     Dosage: UNK, UNKNOWN
     Route: 048
  12. LORAZEPAM. [Suspect]
     Active Substance: LORAZEPAM
     Indication: PRODUCT USED FOR UNKNOWN INDICATION
     Dosage: UNK, UNKNOWN
     Route: 048
  13. OFEV [Suspect]
     Active Substance: NINTEDANIB
     Indication: PULMONARY FIBROSIS
     Dosage: 100 MG, QD
     Route: 048
  14. OXYCODONE HYDROCHLORIDE. [Suspect]
     Active Substance: OXYCODONE HYDROCHLORIDE
     Indication: PRODUCT USED FOR UNKNOWN INDICATION
     Dosage: UNK, UNKNOWN
     Route: 048

REACTIONS (8)
  - Cerebrovascular accident [Recovering/Resolving]
  - Aphasia [Recovering/Resolving]
  - Loss of consciousness [Recovering/Resolving]
  - Overdose [Recovering/Resolving]
  - Pulseless electrical activity [Recovering/Resolving]
  - Amnesia [Recovering/Resolving]
  - Transient ischaemic attack [Recovering/Resolving]
  - Cerebral infarction [Recovering/Resolving]
